FAERS Safety Report 17242415 (Version 1)
Quarter: 2020Q1

REPORT INFORMATION
  Report Type: Spontaneous
  Country: FR (occurrence: FR)
  Receive Date: 20200107
  Receipt Date: 20200107
  Transmission Date: 20200409
  Serious: Yes (Hospitalization)
  Sender: FDA-Public Use
  Company Number: FR-MYLANLABS-2020M1001178

PATIENT
  Age: 56 Year
  Sex: Female
  Weight: 48 kg

DRUGS (5)
  1. KETOPROFEN. [Suspect]
     Active Substance: KETOPROFEN
     Indication: SCIATICA
     Dosage: 200 MILLIGRAM, QD
     Route: 048
     Dates: start: 20190719, end: 20190723
  2. CORTANCYL [Suspect]
     Active Substance: PREDNISONE
     Indication: SCIATICA
     Dosage: 2.5 DOSAGE FORM, QD
     Route: 048
     Dates: start: 20190723, end: 20190802
  3. CELEBREX [Suspect]
     Active Substance: CELECOXIB
     Indication: ANKYLOSING SPONDYLITIS
     Dosage: 2 DOSAGE FORM, QD
     Route: 048
     Dates: start: 2014, end: 20190814
  4. SALAZOPYRINE [Suspect]
     Active Substance: SULFASALAZINE
     Indication: ANKYLOSING SPONDYLITIS
     Dosage: 1 DOSAGE FORM, QD
     Route: 048
     Dates: end: 20190814
  5. IZALGI [Suspect]
     Active Substance: ACETAMINOPHEN\OPIUM
     Indication: SCIATICA
     Dosage: 4 DOSAGE FORM, QD
     Route: 048
     Dates: start: 20190719, end: 20190723

REACTIONS (2)
  - Hepatocellular injury [Recovered/Resolved]
  - Cholestasis [Recovered/Resolved]

NARRATIVE: CASE EVENT DATE: 20190814
